FAERS Safety Report 5577673-3 (Version None)
Quarter: 2007Q4

REPORT INFORMATION
  Report Type: 
  Country: None (occurrence: None)
  Receive Date: 20071231
  Receipt Date: 20071228
  Transmission Date: 20080405
  Serious: Yes (Hospitalization)
  Sender: FDA-Public Use
  Company Number: JP-BRISTOL-MYERS SQUIBB COMPANY-14026868

PATIENT
  Age: 67 Year
  Sex: Female

DRUGS (2)
  1. PARAPLATIN [Suspect]
     Indication: OVARIAN CANCER
     Route: 041
  2. TAXOL [Suspect]
     Route: 041

REACTIONS (1)
  - LOSS OF CONSCIOUSNESS [None]
